FAERS Safety Report 25755311 (Version 2)
Quarter: 2025Q3

REPORT INFORMATION
  Report Type: Spontaneous
  Country: EU (occurrence: EU)
  Receive Date: 20250903
  Receipt Date: 20250912
  Transmission Date: 20251020
  Serious: No
  Sender: ABBVIE
  Company Number: EU-ABBVIE-6441353

PATIENT
  Age: 61 Year
  Sex: Female

DRUGS (8)
  1. VENETOCLAX [Suspect]
     Active Substance: VENETOCLAX
     Indication: Myelodysplastic syndrome with excess blasts
     Route: 048
  2. VENETOCLAX [Suspect]
     Active Substance: VENETOCLAX
     Indication: Myelodysplastic syndrome with excess blasts
     Dosage: 25% REDUCED DOSE
     Route: 048
  3. OBINUTUZUMAB [Suspect]
     Active Substance: OBINUTUZUMAB
     Indication: Myelodysplastic syndrome with excess blasts
  4. AZACITIDINE [Concomitant]
     Active Substance: AZACITIDINE
     Indication: Chronic lymphocytic leukaemia
     Route: 065
  5. MEROPENEM [Concomitant]
     Active Substance: MEROPENEM
     Indication: Pneumonia
  6. LINEZOLID [Concomitant]
     Active Substance: LINEZOLID
     Indication: Pneumonia
  7. LEVOFLOXACIN [Concomitant]
     Active Substance: LEVOFLOXACIN
     Indication: Pneumonia
  8. POSACONAZOLE [Concomitant]
     Active Substance: POSACONAZOLE
     Indication: Pneumonia

REACTIONS (2)
  - Off label use [Unknown]
  - Neutropenia [Recovered/Resolved]
